FAERS Safety Report 15209079 (Version 1)
Quarter: 2018Q3

REPORT INFORMATION
  Report Type: Spontaneous
  Country: US (occurrence: US)
  Receive Date: 20180727
  Receipt Date: 20180727
  Transmission Date: 20181010
  Serious: No
  Sender: FDA-Public Use
  Company Number: US-009507513-1101USA01961

PATIENT
  Age: 19 Year
  Sex: Female

DRUGS (4)
  1. ETRAVIRINE [Suspect]
     Active Substance: ETRAVIRINE
     Dosage: TOTAL DAILY DOSE: 400 (UNKNOWN UNITS), COURSE#1
     Route: 048
     Dates: start: 200910
  2. TENOFOVIR DISOPROXIL FUMARATE. [Suspect]
     Active Substance: TENOFOVIR DISOPROXIL FUMARATE
     Dosage: TOTAL DAILY DOSE: 300 (UNKNOWN UNITS), COURSE#1
     Route: 048
     Dates: start: 200910
  3. ZIDOVUDINE. [Suspect]
     Active Substance: ZIDOVUDINE
     Dosage: TOTAL DAILY DOSE: 483 (UNKNOWN UNITS), COURSE#2
     Route: 042
     Dates: start: 201002
  4. ISENTRESS [Suspect]
     Active Substance: RALTEGRAVIR POTASSIUM
     Dosage: TOTAL DAILY DOSE: 800 (UNKNOWN UNITS), COURSE#1
     Route: 048
     Dates: start: 200910

REACTIONS (2)
  - No adverse event [Unknown]
  - Maternal exposure during pregnancy [Recovered/Resolved]
